FAERS Safety Report 8366144-7 (Version None)
Quarter: 2012Q2

REPORT INFORMATION
  Report Type: 
  Country: None (occurrence: None)
  Receive Date: 20120517
  Receipt Date: 20120507
  Transmission Date: 20120825
  Serious: Yes (Hospitalization, Other)
  Sender: FDA-Public Use
  Company Number: JP-ASTRAZENECA-2012SE23811

PATIENT
  Age: 20 Year
  Sex: Female

DRUGS (3)
  1. PHENYLPROPANOLAMINE HCL [Suspect]
     Route: 048
  2. LORAMET [Suspect]
     Route: 048
  3. SEROQUEL [Suspect]
     Route: 048

REACTIONS (6)
  - RASH [None]
  - LOWER LIMB FRACTURE [None]
  - WHITE BLOOD CELL COUNT DECREASED [None]
  - NEUTROPHIL COUNT DECREASED [None]
  - FALL [None]
  - PYREXIA [None]
